FAERS Safety Report 10961675 (Version 1)
Quarter: 2015Q1

REPORT INFORMATION
  Report Type: Spontaneous
  Country: JP (occurrence: JP)
  Receive Date: 20150327
  Receipt Date: 20150327
  Transmission Date: 20150721
  Serious: Yes (Hospitalization)
  Sender: FDA-Public Use
  Company Number: PHHY2015JP033527

PATIENT
  Age: 21 Year
  Sex: Male

DRUGS (2)
  1. PREDNISOLONE. [Suspect]
     Active Substance: PREDNISOLONE
     Indication: OPTIC NEURITIS
     Dosage: 50 MG, QD
     Route: 048
  2. METHYLPREDNISOLONE. [Suspect]
     Active Substance: METHYLPREDNISOLONE
     Indication: OPTIC NEURITIS
     Dosage: 1 G, UNK
     Route: 065

REACTIONS (9)
  - Hepatic atrophy [Recovered/Resolved]
  - Pyrexia [Recovered/Resolved]
  - Hepatitis fulminant [Recovered/Resolved]
  - Acute hepatitis C [Recovered/Resolved]
  - Asterixis [Recovered/Resolved]
  - Hepatic fibrosis [Recovered/Resolved]
  - Hepatic encephalopathy [Recovered/Resolved]
  - Malaise [Recovered/Resolved]
  - Somnolence [Recovered/Resolved]
